FAERS Safety Report 6034337-X (Version None)
Quarter: 2009Q1

REPORT INFORMATION
  Report Type: 
  Country: None (occurrence: None)
  Receive Date: 20090108
  Receipt Date: 20081223
  Transmission Date: 20090719
  Serious: Yes (Death)
  Sender: FDA-Public Use
  Company Number: 000095

PATIENT
  Age: 58 Year
  Sex: Female

DRUGS (5)
  1. ALPRAZOLAM [Suspect]
     Dosage: 0.25 MG, 0.25MGX480
  2. ACETAMINOPHEN W/DIPHENHYDRAMINE HYDROCHLORIDE [Suspect]
     Dosage: X385
  3. ZOLPIDEM [Suspect]
     Dosage: 10MGX90, 10MGX90
  4. RISPERIDONE [Suspect]
     Dosage: 0.5MGX9
  5. FLUVOXAMINE MALEATE [Suspect]
     Dosage: 100MGX134 -12 HOURS PRIOR TO PRESENTATION

REACTIONS (13)
  - BLOOD CREATINE PHOSPHOKINASE INCREASED [None]
  - BLOOD PRESSURE DECREASED [None]
  - BLOOD SODIUM DECREASED [None]
  - BUNDLE BRANCH BLOCK LEFT [None]
  - BUNDLE BRANCH BLOCK RIGHT [None]
  - COMA [None]
  - COMPLETED SUICIDE [None]
  - METABOLIC ACIDOSIS [None]
  - MULTIPLE DRUG OVERDOSE INTENTIONAL [None]
  - MYDRIASIS [None]
  - NO THERAPEUTIC RESPONSE [None]
  - PUPILLARY REFLEX IMPAIRED [None]
  - SINUS BRADYCARDIA [None]
